FAERS Safety Report 18887830 (Version 1)
Quarter: 2021Q1

REPORT INFORMATION
  Report Type: Report from Study
  Country: CA (occurrence: CA)
  Receive Date: 20210212
  Receipt Date: 20210212
  Transmission Date: 20210420
  Serious: Yes (Hospitalization)
  Sender: FDA-Public Use
  Company Number: CA-PFIZER INC-2021104575

PATIENT
  Sex: Female

DRUGS (11)
  1. PAROXETINE. [Concomitant]
     Active Substance: PAROXETINE
  2. NITROGLYCERIN. [Concomitant]
     Active Substance: NITROGLYCERIN
  3. DESOXIMETASONE. [Concomitant]
     Active Substance: DESOXIMETASONE
  4. ACETYLSALICYLIC ACID [Concomitant]
     Active Substance: ASPIRIN
  5. METOPROLOL. [Concomitant]
     Active Substance: METOPROLOL
  6. RITUXIMAB. [Suspect]
     Active Substance: RITUXIMAB
     Indication: RHEUMATOID ARTHRITIS
     Dosage: 1 MG
     Route: 042
  7. AMLODIPINE [Concomitant]
     Active Substance: AMLODIPINE BESYLATE
  8. ACETAMINOPHEN. [Concomitant]
     Active Substance: ACETAMINOPHEN
  9. SIMPONI [Concomitant]
     Active Substance: GOLIMUMAB
     Route: 058
  10. CANDESARTAN. [Concomitant]
     Active Substance: CANDESARTAN
  11. LIPITOR [Concomitant]
     Active Substance: ATORVASTATIN CALCIUM
     Route: 065

REACTIONS (1)
  - Seizure [Unknown]
